FAERS Safety Report 9393166 (Version 2)
Quarter: 2013Q3

REPORT INFORMATION
  Report Type: Spontaneous
  Country: FR (occurrence: FR)
  Receive Date: 20130710
  Receipt Date: 20130725
  Transmission Date: 20140515
  Serious: Yes (Life-Threatening, Hospitalization)
  Sender: FDA-Public Use
  Company Number: FR-B.I. PHARMACEUTICALS,INC./RIDGEFIELD-2013-FF-01825FF

PATIENT
  Age: 74 Year
  Sex: Male

DRUGS (7)
  1. PRADAXA [Suspect]
     Indication: ATRIAL FLUTTER
     Dosage: 220 MG
     Route: 048
     Dates: start: 201303, end: 20130610
  2. ZESTRIL [Concomitant]
  3. KARDEGIC [Concomitant]
     Route: 048
  4. EZETROL [Concomitant]
     Route: 048
  5. BURINEX [Concomitant]
     Dosage: 20 MG
  6. CORDARONE [Concomitant]
  7. TEMESTA [Concomitant]

REACTIONS (2)
  - Pericardial effusion [Not Recovered/Not Resolved]
  - Cardiac tamponade [Not Recovered/Not Resolved]
